FAERS Safety Report 9161700 (Version 2)
Quarter: 2013Q4

REPORT INFORMATION
  Report Type: Spontaneous
  Country: CA (occurrence: CA)
  Receive Date: 20130314
  Receipt Date: 20131218
  Transmission Date: 20140711
  Serious: Yes (Hospitalization)
  Sender: FDA-Public Use
  Company Number: CA-AMGEN-CANSP2013016981

PATIENT
  Age: 64 Year
  Sex: Female

DRUGS (14)
  1. ENBREL [Suspect]
     Indication: RHEUMATOID ARTHRITIS
     Dosage: 50 MG, QWK
     Route: 065
     Dates: start: 20120528, end: 201303
  2. METHOTREXATE [Suspect]
     Indication: PRODUCT USED FOR UNKNOWN INDICATION
     Dosage: 0.8 ML, QWK
     Route: 065
  3. MULTIVITAMINS, PLAIN [Concomitant]
     Dosage: 1 DF, QD
  4. ADVAIR [Concomitant]
     Dosage: 2 PUFFS BID
  5. NORVASC [Concomitant]
     Dosage: 5 MG, QD
  6. OMEPRAZOLE [Concomitant]
     Dosage: 20 MG, BID
  7. FOLIC ACID [Concomitant]
     Dosage: 5 MG, UNK
  8. CYCLOBENZAPRINE [Concomitant]
     Dosage: 2 TABS
  9. HYDROMORPH CONTIN [Concomitant]
     Dosage: 30 MG, BID
  10. HYDROMORPHONE [Concomitant]
     Dosage: 4 MG, 2 TABLETS BID
  11. CLONAZEPAM [Concomitant]
     Dosage: 0.5 MG,HS
  12. AMITRIPTYLINE [Concomitant]
     Dosage: 25 MG
  13. TYLENOL EXTRA-STRENGTH [Concomitant]
     Dosage: 2 TABLETS
  14. CALTRATE                           /07357001/ [Concomitant]
     Dosage: 400 IU, UNK

REACTIONS (1)
  - Pancreatitis [Not Recovered/Not Resolved]
